FAERS Safety Report 8212480-4 (Version None)
Quarter: 2012Q1

REPORT INFORMATION
  Report Type: 
  Country: None (occurrence: None)
  Receive Date: 20120315
  Receipt Date: 20120307
  Transmission Date: 20120608
  Serious: Yes (Death, Hospitalization)
  Sender: FDA-Public Use
  Company Number: US-GLAXOSMITHKLINE-A0957992A

PATIENT
  Age: 78 Year
  Sex: Male

DRUGS (15)
  1. NORVASC [Concomitant]
  2. HECTOROL [Concomitant]
  3. MINITRAN [Concomitant]
  4. TOPROL-XL [Concomitant]
  5. ASPIRIN [Concomitant]
  6. VENOFER [Concomitant]
  7. ZOCOR [Concomitant]
  8. DIALYSIS [Concomitant]
  9. ARANESP [Concomitant]
  10. LAMICTAL [Suspect]
     Indication: EPILEPSY
     Dosage: 150MG TWICE PER DAY
     Route: 048
  11. ACTOS [Concomitant]
  12. MULTI-VITAMINS [Concomitant]
  13. ALTACE [Concomitant]
  14. NITROGLYCERIN [Concomitant]
  15. HEPARIN [Concomitant]

REACTIONS (3)
  - MYOCARDIAL INFARCTION [None]
  - CIRCULATORY COLLAPSE [None]
  - ANGIOPATHY [None]
